FAERS Safety Report 21020848 (Version 1)
Quarter: 2022Q2

REPORT INFORMATION
  Report Type: Spontaneous
  Country: IT (occurrence: IT)
  Receive Date: 20220629
  Receipt Date: 20220629
  Transmission Date: 20220721
  Serious: Yes (Other)
  Sender: FDA-Public Use
  Company Number: IT-AMGEN-ITASP2022106191

PATIENT
  Age: 14 Year
  Sex: Male

DRUGS (4)
  1. ROMIPLOSTIM [Suspect]
     Active Substance: ROMIPLOSTIM
     Indication: Immune thrombocytopenia
     Dosage: 2 MICROGRAM/KILOGRAM/WEEK
     Route: 065
     Dates: start: 2020
  2. ROMIPLOSTIM [Suspect]
     Active Substance: ROMIPLOSTIM
     Dosage: 10 MICROGRAM/KILOGRAM/WEEK
     Route: 065
  3. BORTEZOMIB [Concomitant]
     Active Substance: BORTEZOMIB
     Indication: Immune thrombocytopenia
     Dosage: 1.3 MILLIGRAM/MQ/DOSE, ON DAYS 1-4-8-11
     Dates: start: 202011
  4. HUMAN IMMUNOGLOBULIN G [Concomitant]
     Active Substance: HUMAN IMMUNOGLOBULIN G
     Indication: Immune thrombocytopenia
     Dosage: LOW DOSE
     Route: 042

REACTIONS (3)
  - Platelet destruction increased [Unknown]
  - Marrow hyperplasia [Unknown]
  - Platelet count decreased [Unknown]

NARRATIVE: CASE EVENT DATE: 20201001
